FAERS Safety Report 25069768 (Version 1)
Quarter: 2025Q1

REPORT INFORMATION
  Report Type: Spontaneous
  Country: US (occurrence: None)
  Receive Date: 20250312
  Receipt Date: 20250312
  Transmission Date: 20250408
  Serious: Yes (Other)
  Sender: FDA-CTU
  Company Number: None

PATIENT
  Age: 71 Year
  Sex: Female

DRUGS (1)
  1. OTEZLA [Suspect]
     Active Substance: APREMILAST
     Dates: start: 20250306, end: 20250311

REACTIONS (3)
  - Arthritis [None]
  - Pain in extremity [None]
  - Apraxia [None]

NARRATIVE: CASE EVENT DATE: 20250312
